FAERS Safety Report 8826080 (Version 1)
Quarter: 2012Q4

REPORT INFORMATION
  Report Type: 
  Country: US (occurrence: US)
  Receive Date: 20121005
  Receipt Date: 20121005
  Transmission Date: 20130627
  Serious: Yes (Hospitalization)
  Sender: FDA-Public Use
  Company Number: US-ROCHE-1136089

PATIENT
  Sex: Female

DRUGS (3)
  1. RITUXAN [Suspect]
     Indication: OFF LABEL USE
     Route: 065
     Dates: start: 20011206
  2. RITUXAN [Suspect]
     Indication: LEUKOCYTOSIS
  3. RITUXAN [Suspect]
     Indication: LYMPHADENOPATHY

REACTIONS (3)
  - Pneumothorax [Unknown]
  - Sinus tachycardia [Unknown]
  - Pleural effusion [Unknown]
